FAERS Safety Report 15230551 (Version 1)
Quarter: 2018Q3

REPORT INFORMATION
  Report Type: Spontaneous
  Country: US (occurrence: US)
  Receive Date: 20180802
  Receipt Date: 20180802
  Transmission Date: 20181010
  Serious: No
  Sender: FDA-Public Use
  Company Number: US-BAUSCH-BL-2018-020557

PATIENT
  Sex: Female

DRUGS (1)
  1. ARESTIN [Suspect]
     Active Substance: MINOCYCLINE HYDROCHLORIDE
     Indication: PRODUCT USED FOR UNKNOWN INDICATION
     Dosage: PLACED DURING DENTAL PROCEDURE
     Route: 065
     Dates: start: 20180721

REACTIONS (4)
  - Hyperhidrosis [Unknown]
  - Headache [Unknown]
  - Cold sweat [Unknown]
  - Nausea [Unknown]

NARRATIVE: CASE EVENT DATE: 20180721
